FAERS Safety Report 23878817 (Version 1)
Quarter: 2024Q2

REPORT INFORMATION
  Report Type: Spontaneous
  Country: US (occurrence: US)
  Receive Date: 20240521
  Receipt Date: 20240521
  Transmission Date: 20240716
  Serious: Yes (Other)
  Sender: FDA-Public Use
  Company Number: US-BRISTOL-MYERS SQUIBB COMPANY-2024-074679

PATIENT
  Age: 86 Year
  Sex: Female

DRUGS (1)
  1. LENALIDOMIDE [Suspect]
     Active Substance: LENALIDOMIDE
     Indication: Diffuse large B-cell lymphoma
     Dosage: TAKE 1 CAPSULE BY MOUTH EVERY DAYFOR 21 DAYS ON, THEN 7 DAYS OFF EVERY 28 DAY CYCYLE
     Route: 048

REACTIONS (2)
  - Intra-abdominal fluid collection [Recovering/Resolving]
  - Off label use [Unknown]
